FAERS Safety Report 4380382-X (Version None)
Quarter: 2004Q2

REPORT INFORMATION
  Report Type: 
  Country: None (occurrence: None)
  Receive Date: 20040618
  Receipt Date: 20040608
  Transmission Date: 20050107
  Serious: Yes (Hospitalization)
  Sender: FDA-Public Use
  Company Number: FR-BRISTOL-MYERS SQUIBB COMPANY-12608907

PATIENT
  Age: 47 Year
  Sex: Male
  Weight: 96 kg

DRUGS (2)
  1. ELISOR TABS [Suspect]
     Route: 048
     Dates: start: 19990615
  2. STABLON [Suspect]
     Route: 048
     Dates: start: 20030615

REACTIONS (3)
  - MUSCLE INJURY [None]
  - MYALGIA [None]
  - TENDON DISORDER [None]
